FAERS Safety Report 9215561 (Version 1)
Quarter: 2013Q2

REPORT INFORMATION
  Report Type: Spontaneous
  Country: IT (occurrence: IT)
  Receive Date: 20130407
  Receipt Date: 20130407
  Transmission Date: 20140414
  Serious: Yes (Hospitalization)
  Sender: FDA-Public Use
  Company Number: IT-BRISTOL-MYERS SQUIBB COMPANY-18721860

PATIENT
  Age: 18 Year
  Sex: Male

DRUGS (3)
  1. ABILIFY TABS 5 MG [Suspect]
     Indication: OBSESSIVE-COMPULSIVE DISORDER
     Dosage: 5 MG-TABS.
     Route: 048
     Dates: start: 20130225, end: 20130311
  2. PAROXETINE HCL [Concomitant]
     Indication: ABNORMAL BEHAVIOUR
     Dosage: HEMIHYDRATES TABLETS.
     Route: 048
  3. DELORAZEPAM [Concomitant]
     Dosage: DOSAGE FORM: 5 DROPS.?1MG/ML ORAL DROP SOLUTION
     Route: 048

REACTIONS (6)
  - Dystonia [Recovered/Resolved]
  - Clonus [Recovered/Resolved]
  - Muscle spasticity [Recovered/Resolved]
  - Sensory disturbance [Recovered/Resolved]
  - Strangury [Recovered/Resolved]
  - Urine output decreased [Recovered/Resolved]
